FAERS Safety Report 12201557 (Version 1)
Quarter: 2016Q1

REPORT INFORMATION
  Report Type: Spontaneous
  Country: US (occurrence: US)
  Receive Date: 20160322
  Receipt Date: 20160322
  Transmission Date: 20160526
  Serious: No
  Sender: FDA-Public Use
  Company Number: US-SA-2015SA181286

PATIENT
  Age: 85 Year
  Sex: Male

DRUGS (2)
  1. NASACORT ALLERGY 24HR [Suspect]
     Active Substance: TRIAMCINOLONE ACETONIDE
     Indication: SNEEZING
     Dosage: 2 SPRAY/ NOSTRIL
     Route: 045
     Dates: start: 20151104
  2. NASACORT ALLERGY 24HR [Suspect]
     Active Substance: TRIAMCINOLONE ACETONIDE
     Indication: RHINORRHOEA
     Dosage: 2 SPRAY/ NOSTRIL
     Route: 045
     Dates: start: 20151104

REACTIONS (2)
  - Therapeutic response decreased [Unknown]
  - Cough [Unknown]

NARRATIVE: CASE EVENT DATE: 20151105
